FAERS Safety Report 4581259-7 (Version None)
Quarter: 2005Q1

REPORT INFORMATION
  Report Type: 
  Country: None (occurrence: None)
  Receive Date: 20050214
  Receipt Date: 20040915
  Transmission Date: 20050727
  Serious: No
  Sender: FDA-Public Use
  Company Number: US-GLAXOSMITHKLINE-A0525797A

PATIENT
  Sex: Female

DRUGS (2)
  1. LAMICTAL [Suspect]
     Indication: ILL-DEFINED DISORDER
     Dosage: 37.5MG TWICE PER DAY
     Route: 048
     Dates: start: 20040729
  2. NO CONCURRENT MEDICATION [Concomitant]

REACTIONS (5)
  - DRUG INEFFECTIVE [None]
  - ORAL PAIN [None]
  - PHARYNGOLARYNGEAL PAIN [None]
  - RASH [None]
  - WEIGHT DECREASED [None]
